FAERS Safety Report 10322266 (Version 2)
Quarter: 2015Q1

REPORT INFORMATION
  Report Type: Other
  Country: US (occurrence: US)
  Receive Date: 20140720
  Receipt Date: 20150319
  Transmission Date: 20150720
  Serious: Yes (Hospitalization)
  Sender: FDA-Public Use
  Company Number: US-GSKPPD-2014GSK035353

PATIENT
  Age: 53 Year
  Sex: Female

DRUGS (5)
  1. K-DUR [Concomitant]
     Active Substance: POTASSIUM CHLORIDE
  2. WARFARIN [Concomitant]
     Active Substance: WARFARIN
  3. COZAAR [Concomitant]
     Active Substance: LOSARTAN POTASSIUM
  4. AVANDIA [Suspect]
     Active Substance: ROSIGLITAZONE MALEATE
     Indication: DIABETES MELLITUS
     Dosage: DATES OF AVANDIA USE COULD NOT BE CONFIRMED IN RECORDS REVIEWED.
     Route: 048
  5. FUROSEMIDE. [Concomitant]
     Active Substance: FUROSEMIDE

REACTIONS (1)
  - Cardiac failure congestive [Recovered/Resolved]

NARRATIVE: CASE EVENT DATE: 20080328
